FAERS Safety Report 5019155-3 (Version None)
Quarter: 2006Q2

REPORT INFORMATION
  Report Type: 
  Country: None (occurrence: None)
  Receive Date: 20060531
  Receipt Date: 20060517
  Transmission Date: 20061013
  Serious: Yes (Hospitalization)
  Sender: FDA-Public Use
  Company Number: 225236

PATIENT
  Age: 49 Year
  Sex: Male

DRUGS (1)
  1. RAPTIVA [Suspect]
     Indication: PSORIASIS
     Dosage: 90 MG, 1/WEEK, SUBCUTANEOUS
     Route: 058
     Dates: start: 20060301

REACTIONS (1)
  - HERPES ZOSTER OPHTHALMIC [None]
